FAERS Safety Report 7274373-9 (Version None)
Quarter: 2011Q1

REPORT INFORMATION
  Report Type: 
  Country: None (occurrence: None)
  Receive Date: 20110201
  Receipt Date: 20110201
  Transmission Date: 20110831
  Serious: Yes (Other)
  Sender: FDA-Public Use
  Company Number: None

PATIENT
  Age: 49 Year
  Sex: Male
  Weight: 124 kg

DRUGS (3)
  1. FENTANYL [Suspect]
     Indication: SEDATION
     Dosage: 120 MCG EVERY HOUR IV
     Route: 042
     Dates: start: 20110126, end: 20110127
  2. FENTANYL [Suspect]
     Indication: PAIN MANAGEMENT
     Dosage: 120 MCG EVERY HOUR IV
     Route: 042
     Dates: start: 20110126, end: 20110127
  3. LINEZOLID [Suspect]
     Indication: BACTERIAL TEST
     Dosage: 600MG EVERY 12 HOURS IV
     Route: 042
     Dates: start: 20110122, end: 20110128

REACTIONS (1)
  - BLOOD PRESSURE INCREASED [None]
